FAERS Safety Report 7306178-4 (Version None)
Quarter: 2011Q1

REPORT INFORMATION
  Report Type: 
  Country: None (occurrence: None)
  Receive Date: 20110222
  Receipt Date: 20110211
  Transmission Date: 20110831
  Serious: Yes (Other)
  Sender: FDA-Public Use
  Company Number: FR-JNJFOC-20110203880

PATIENT
  Sex: Male

DRUGS (8)
  1. RISPERDAL [Suspect]
     Route: 048
  2. HALDOL [Suspect]
     Indication: IRRITABILITY
     Dosage: TREATED FOR A PERIOD OF 6 MONTHS
     Route: 048
  3. HALDOL [Suspect]
     Route: 048
  4. HALDOL [Suspect]
     Route: 048
  5. RISPERDAL [Suspect]
     Route: 048
  6. RISPERDAL [Suspect]
     Indication: IRRITABILITY
     Dosage: TREATED FOR A PERIOD OF 6 MONTHS
     Route: 048
  7. RISPERDAL [Suspect]
     Indication: AGGRESSION
     Dosage: TREATED FOR A PERIOD OF 6 MONTHS
     Route: 048
  8. HALDOL [Suspect]
     Indication: AGGRESSION
     Dosage: TREATED FOR A PERIOD OF 6 MONTHS
     Route: 048

REACTIONS (1)
  - HALLUCINATION, AUDITORY [None]
